FAERS Safety Report 5292515-1 (Version None)
Quarter: 2007Q1

REPORT INFORMATION
  Report Type: 
  Country: None (occurrence: None)
  Receive Date: 20070327
  Receipt Date: 20070322
  Transmission Date: 20070707
  Serious: Yes (Other)
  Sender: FDA-Public Use
  Company Number: 200711652

PATIENT
  Age: 8 Year
  Sex: Female
  Weight: 22.6799 kg

DRUGS (13)
  1. IMMUNE GLUBULINE SUBCUTANEOUS (HUMAN) (ZLB BEHRING) [Suspect]
     Indication: IMMUNE SYSTEM DISORDER
     Dosage: 3.2 G Q1W SC
     Route: 058
     Dates: start: 20070131, end: 20070131
  2. IMMUNE GLUBULINE SUBCUTANEOUS (HUMAN) (ZLB BEHRING) [Suspect]
     Indication: IMMUNE SYSTEM DISORDER
     Dosage: 3.2 G Q1W SC
     Route: 058
     Dates: start: 20070206, end: 20070206
  3. TOPAMAX [Concomitant]
  4. TRILEPTAL [Concomitant]
  5. PHENOBARBITAL /00023202/ [Concomitant]
  6. SINGULAIR /01362601/ [Concomitant]
  7. BACLOFEN [Concomitant]
  8. LAMICTAL DISPER TAB [Concomitant]
  9. CLARITIN [Concomitant]
  10. MULTIVITAMIN /00831701/ [Concomitant]
  11. XOPENEX [Concomitant]
  12. ROBINUL [Concomitant]
  13. .. [Concomitant]

REACTIONS (2)
  - CONDITION AGGRAVATED [None]
  - CONVULSION [None]
